FAERS Safety Report 6012771-1 (Version None)
Quarter: 2008Q4

REPORT INFORMATION
  Report Type: 
  Country: None (occurrence: None)
  Receive Date: 20081219
  Receipt Date: 20081215
  Transmission Date: 20090506
  Serious: Yes (Hospitalization, Other)
  Sender: FDA-Public Use
  Company Number: DE-RANBAXY-2008RR-19336

PATIENT
  Sex: Male
  Weight: 72 kg

DRUGS (5)
  1. ACYCLOVIR [Suspect]
     Indication: HERPES ZOSTER
     Dosage: 4000 MG, UNK
     Route: 048
     Dates: start: 20080914, end: 20081008
  2. ASS ISIS [Concomitant]
     Dosage: 100 MG, QD
  3. CARVEDILOL [Concomitant]
     Indication: HYPERTENSION
     Dosage: 25 MG, UNK
     Route: 048
     Dates: start: 20050101
  4. MANINIL [Concomitant]
     Indication: TYPE 2 DIABETES MELLITUS
     Dosage: 3.5 MG, UNK
     Route: 048
     Dates: start: 20040101, end: 20070101
  5. RAMIPRIL [Concomitant]
     Indication: HYPERTENSION
     Dosage: 2.5 MG, QD
     Route: 048
     Dates: start: 20070701

REACTIONS (1)
  - COOMBS POSITIVE HAEMOLYTIC ANAEMIA [None]
